FAERS Safety Report 4919431-6 (Version None)
Quarter: 2006Q1

REPORT INFORMATION
  Report Type: 
  Country: None (occurrence: None)
  Receive Date: 20060216
  Receipt Date: 20060201
  Transmission Date: 20060701
  Serious: No
  Sender: FDA-Public Use
  Company Number: 2006BL000618

PATIENT
  Age: 53 Year
  Sex: Male

DRUGS (4)
  1. DESMOPRESSIN ACETATE [Suspect]
     Indication: DIABETES INSIPIDUS
     Dosage: 1 SPRAY; TWICE A DAY; NASAL
     Route: 045
     Dates: start: 20050301
  2. XANAX (USA) [Concomitant]
  3. OMEPRAZOLE [Concomitant]
  4. UNSPECIFIED BLOOD PRESSURE MEDICATION^ [Concomitant]

REACTIONS (7)
  - ABDOMINAL DISTENSION [None]
  - BLOOD SODIUM DECREASED [None]
  - CONFUSIONAL STATE [None]
  - DEHYDRATION [None]
  - DRUG INEFFECTIVE [None]
  - INCORRECT DOSE ADMINISTERED [None]
  - PHARMACEUTICAL PRODUCT COMPLAINT [None]
